FAERS Safety Report 10906320 (Version 1)
Quarter: 2015Q1

REPORT INFORMATION
  Report Type: Spontaneous
  Country: US (occurrence: US)
  Receive Date: 20150311
  Receipt Date: 20150311
  Transmission Date: 20150721
  Serious: Yes (Hospitalization, Other)
  Sender: FDA-Public Use
  Company Number: US-MYLANLABS-2015M1007460

PATIENT

DRUGS (3)
  1. AMPICILLIN [Suspect]
     Active Substance: AMPICILLIN
     Indication: MENINGITIS
     Dosage: UNK
  2. VANCOMYCIN [Suspect]
     Active Substance: VANCOMYCIN
     Indication: MENINGITIS
     Dosage: UNK
  3. CEFTRIAXONE. [Suspect]
     Active Substance: CEFTRIAXONE
     Indication: MENINGITIS

REACTIONS (1)
  - Drug ineffective [Recovered/Resolved]
